FAERS Safety Report 16515311 (Version 1)
Quarter: 2019Q3

REPORT INFORMATION
  Report Type: Spontaneous
  Country: US (occurrence: US)
  Receive Date: 20190522
  Receipt Date: 20190522
  Transmission Date: 20191004
  Serious: Yes (Hospitalization)
  Sender: FDA-Public Use
  Company Number: None

PATIENT
  Age: 71 Year
  Sex: Male
  Weight: 60.78 kg

DRUGS (2)
  1. GEMCITABINE HYDROCHLORIDE. [Suspect]
     Active Substance: GEMCITABINE HYDROCHLORIDE
     Dates: end: 20190430
  2. CISPLATIN. [Suspect]
     Active Substance: CISPLATIN
     Dates: end: 20190430

REACTIONS (8)
  - Urinary tract infection [None]
  - Sepsis [None]
  - Incontinence [None]
  - Gait disturbance [None]
  - Grip strength decreased [None]
  - Slow response to stimuli [None]
  - Acute kidney injury [None]
  - Lactic acidosis [None]

NARRATIVE: CASE EVENT DATE: 20190516
